FAERS Safety Report 17927775 (Version 1)
Quarter: 2020Q2

REPORT INFORMATION
  Report Type: Other
  Country: FR (occurrence: FR)
  Receive Date: 20200622
  Receipt Date: 20200622
  Transmission Date: 20200714
  Serious: Yes (Hospitalization)
  Sender: FDA-Public Use
  Company Number: FR-ALSI-202000220

PATIENT
  Age: 56 Year
  Sex: Female

DRUGS (1)
  1. NITROUS OXIDE. [Suspect]
     Active Substance: NITROUS OXIDE
     Indication: ANAESTHESIA
     Route: 055

REACTIONS (6)
  - Anaemia macrocytic [Unknown]
  - Vitamin B12 deficiency [Recovering/Resolving]
  - Subacute combined cord degeneration [Recovering/Resolving]
  - Encephalopathy [Recovering/Resolving]
  - Constipation [Unknown]
  - Urinary incontinence [Unknown]
